FAERS Safety Report 5964870-8 (Version None)
Quarter: 2008Q4

REPORT INFORMATION
  Report Type: 
  Country: None (occurrence: None)
  Receive Date: 20081124
  Receipt Date: 20081124
  Transmission Date: 20090506
  Serious: Yes (Other)
  Sender: FDA-Public Use
  Company Number: None

PATIENT
  Age: 8 Year
  Sex: Male
  Weight: 30.391 kg

DRUGS (1)
  1. SINGULAIR [Suspect]
     Indication: ASTHMA
     Dosage: .5MG ONCE DAILY PO
     Route: 048
     Dates: start: 20080903, end: 20081118

REACTIONS (2)
  - ABNORMAL BEHAVIOUR [None]
  - HEADACHE [None]
